FAERS Safety Report 4274454-8 (Version None)
Quarter: 2004Q1

REPORT INFORMATION
  Report Type: 
  Country: None (occurrence: None)
  Receive Date: 20040115
  Receipt Date: 20040107
  Transmission Date: 20041129
  Serious: Yes (Hospitalization, Other)
  Sender: FDA-Public Use
  Company Number: 200314162FR

PATIENT
  Age: 29 Year
  Sex: Male
  Weight: 78 kg

DRUGS (3)
  1. NASACORT [Suspect]
     Indication: RHINITIS SEASONAL
     Dosage: 220 UG/DAY INH
     Route: 055
     Dates: start: 20010101, end: 20030901
  2. PREDNISOLONE [Suspect]
     Dosage: 2XY PO
     Route: 048
  3. MEQUITAZINE (PRIMALAN) TABLETS [Suspect]
     Dosage: 10 MG/DAY PO
     Route: 048
     Dates: start: 20010101, end: 20030901

REACTIONS (1)
  - ASEPTIC NECROSIS BONE [None]
